FAERS Safety Report 21490765 (Version 2)
Quarter: 2022Q4

REPORT INFORMATION
  Report Type: Spontaneous
  Country: JP (occurrence: JP)
  Receive Date: 20221021
  Receipt Date: 20221114
  Transmission Date: 20230113
  Serious: Yes (Life-Threatening)
  Sender: FDA-Public Use
  Company Number: JP-GEHPL-2022JSU007389AA

PATIENT
  Age: 8 Decade
  Sex: Female
  Weight: 40 kg

DRUGS (5)
  1. OMNIPAQUE [Suspect]
     Active Substance: IOHEXOL
     Indication: Computerised tomogram
     Dosage: 80 ML, SINGLE
     Route: 042
     Dates: start: 20221003, end: 20221003
  2. OMNIPAQUE [Suspect]
     Active Substance: IOHEXOL
     Indication: Metastatic neoplasm
  3. OXYCODONE [Concomitant]
     Active Substance: OXYCODONE
     Indication: Cancer pain
     Dosage: UNK, PRN
     Route: 048
  4. Oxinorm [Concomitant]
     Indication: Cancer pain
     Dosage: UNK, PRN
     Route: 048
  5. TS-1 [Concomitant]
     Active Substance: GIMERACIL\OTERACIL\TEGAFUR
     Indication: Pancreatic carcinoma
     Dosage: 40 MG, BID
     Route: 048

REACTIONS (4)
  - Atrial fibrillation [Recovered/Resolved]
  - Palpitations [Recovered/Resolved]
  - Vomiting [Recovered/Resolved]
  - Blood pressure decreased [Recovered/Resolved]

NARRATIVE: CASE EVENT DATE: 20221003
